FAERS Safety Report 13642552 (Version 2)
Quarter: 2018Q2

REPORT INFORMATION
  Report Type: Spontaneous
  Country: US (occurrence: US)
  Receive Date: 20170612
  Receipt Date: 20180612
  Transmission Date: 20180711
  Serious: No
  Sender: FDA-Public Use
  Company Number: US-SEPTODONT-201603546

PATIENT
  Age: 39 Year
  Sex: Male

DRUGS (7)
  1. SEPTOCAINE AND EPINEPHRINE [Suspect]
     Active Substance: ARTICAINE HYDROCHLORIDE\EPINEPHRINE BITARTRATE
     Indication: LOCAL ANAESTHESIA
     Dosage: INFILTRATION IN PALATAL HEALTHY TISSUE WITH 1/2^ 30G NEEDLE. 0.5 DF FROM DRUG #1, #2, #3, OR #4
     Route: 004
     Dates: start: 20160602, end: 20160602
  2. SEPTOCAINE AND EPINEPHRINE [Suspect]
     Active Substance: ARTICAINE HYDROCHLORIDE\EPINEPHRINE BITARTRATE
     Indication: LOCAL ANAESTHESIA
     Dosage: INFILTRATION IN PALATAL HEALTHY TISSUE WITH 1/2^ 30G NEEDLE. 0.5 DF FROM DRUG #1, #2, #3, OR #4
     Route: 004
     Dates: start: 20160602, end: 20160602
  3. SEPTOCAINE AND EPINEPHRINE [Suspect]
     Active Substance: ARTICAINE HYDROCHLORIDE\EPINEPHRINE BITARTRATE
     Indication: LOCAL ANAESTHESIA
     Dosage: INFILTRATION IN PALATAL HEALTHY TISSUE WITH 1/2^ 30G NEEDLE. 0.5 DF FROM DRUG #1, #2, #3, OR #4
     Route: 004
     Dates: start: 20160602, end: 20160602
  4. DIAZEPAM. [Concomitant]
     Active Substance: DIAZEPAM
  5. SERTRALINE HYDROCHLORIDE. [Concomitant]
     Active Substance: SERTRALINE HYDROCHLORIDE
  6. SEPTOCAINE AND EPINEPHRINE [Suspect]
     Active Substance: ARTICAINE HYDROCHLORIDE\EPINEPHRINE BITARTRATE
     Indication: LOCAL ANAESTHESIA
     Dosage: INFILTRATION IN PALATAL HEALTHY TISSUE WITH 1/2^ 30G NEEDLE. 0.5 DF FROM DRUG #1, #2, #3, OR #4
     Route: 004
     Dates: start: 20160602, end: 20160602
  7. BENZOCAINE. [Concomitant]
     Active Substance: BENZOCAINE
     Dates: start: 20160602, end: 20160602

REACTIONS (3)
  - Discomfort [Recovered/Resolved]
  - Hypoaesthesia [Recovered/Resolved]
  - Injection site ulcer [Recovered/Resolved]

NARRATIVE: CASE EVENT DATE: 20160602
